FAERS Safety Report 12839575 (Version 1)
Quarter: 2016Q4

REPORT INFORMATION
  Report Type: Spontaneous
  Country: US (occurrence: US)
  Receive Date: 20161012
  Receipt Date: 20161012
  Transmission Date: 20170207
  Serious: No
  Sender: FDA-Public Use
  Company Number: US-ASTRAZENECA-2016SF05037

PATIENT
  Age: 61 Year
  Sex: Female

DRUGS (1)
  1. BYDUREON [Suspect]
     Active Substance: EXENATIDE
     Dosage: UNKNOWN
     Route: 065
     Dates: start: 2015

REACTIONS (5)
  - Vomiting [Unknown]
  - Gallbladder disorder [Unknown]
  - Abdominal distension [Unknown]
  - Hypophagia [Unknown]
  - Weight decreased [Unknown]
